FAERS Safety Report 7388549-3 (Version None)
Quarter: 2011Q2

REPORT INFORMATION
  Report Type: 
  Country: None (occurrence: None)
  Receive Date: 20110401
  Receipt Date: 20110329
  Transmission Date: 20111010
  Serious: Yes (Other)
  Sender: FDA-Public Use
  Company Number: US-PFIZER INC-2011070792

PATIENT
  Age: 70 Year

DRUGS (2)
  1. ACCUPRIL [Suspect]
     Indication: HYPERTENSION
  2. XANAX [Suspect]
     Indication: NERVOUSNESS

REACTIONS (1)
  - INFECTION [None]
